FAERS Safety Report 13705025 (Version 1)
Quarter: 2017Q2

REPORT INFORMATION
  Report Type: Spontaneous
  Country: US (occurrence: US)
  Receive Date: 20170629
  Receipt Date: 20170629
  Transmission Date: 20170830
  Serious: Yes (Hospitalization, Disabling, Other)
  Sender: FDA-Public Use
  Company Number: None

PATIENT
  Age: 54 Year
  Sex: Female
  Weight: 90 kg

DRUGS (11)
  1. VITAMIN D [Concomitant]
     Active Substance: CHOLECALCIFEROL
  2. SYNTHROID [Concomitant]
     Active Substance: LEVOTHYROXINE SODIUM
  3. GABAPENTIN. [Concomitant]
     Active Substance: GABAPENTIN
  4. CLONEZAPAM [Suspect]
     Active Substance: CLONAZEPAM
     Indication: PANIC DISORDER
     Dosage: ?          QUANTITY:5 TABLET(S);OTHER FREQUENCY:1 MG AM/1.5 MG PM;?
     Route: 048
  5. FLOVENT [Concomitant]
     Active Substance: FLUTICASONE PROPIONATE
  6. CLONEZAPAM [Suspect]
     Active Substance: CLONAZEPAM
     Indication: AGORAPHOBIA
     Dosage: ?          QUANTITY:5 TABLET(S);OTHER FREQUENCY:1 MG AM/1.5 MG PM;?
     Route: 048
  7. PREMARIN [Concomitant]
     Active Substance: ESTROGENS, CONJUGATED
  8. MYRBETRIQ [Concomitant]
     Active Substance: MIRABEGRON
  9. ZYRTEK [Concomitant]
     Active Substance: CETIRIZINE HYDROCHLORIDE
  10. LEXAPRO [Concomitant]
     Active Substance: ESCITALOPRAM OXALATE
  11. PROVENTIL [Concomitant]
     Active Substance: ALBUTEROL

REACTIONS (16)
  - Anxiety [None]
  - Pain [None]
  - Depression [None]
  - Memory impairment [None]
  - Drug withdrawal syndrome [None]
  - Diarrhoea [None]
  - Dizziness [None]
  - Panic reaction [None]
  - Confusional state [None]
  - Drug use disorder [None]
  - Drug tolerance [None]
  - Balance disorder [None]
  - Suicidal ideation [None]
  - Impaired work ability [None]
  - Coordination abnormal [None]
  - Cognitive disorder [None]
